FAERS Safety Report 18419518 (Version 1)
Quarter: 2020Q4

REPORT INFORMATION
  Report Type: Spontaneous
  Country: US (occurrence: US)
  Receive Date: 20201023
  Receipt Date: 20201023
  Transmission Date: 20210114
  Serious: No
  Sender: FDA-Public Use
  Company Number: US-TEVA-2020-US-1841076

PATIENT
  Sex: Female

DRUGS (2)
  1. FLUDROCORTISONE ACETATE TEVA [Suspect]
     Active Substance: FLUDROCORTISONE ACETATE
     Indication: HYPOTENSION
     Route: 065
  2. CARBIDOPA/LEVODOPA [Concomitant]
     Active Substance: CARBIDOPA\LEVODOPA
     Indication: PARKINSON^S DISEASE
     Route: 065

REACTIONS (3)
  - Asthenia [Not Recovered/Not Resolved]
  - Product use in unapproved indication [Unknown]
  - Blood pressure decreased [Not Recovered/Not Resolved]
